FAERS Safety Report 15226170 (Version 1)
Quarter: 2018Q3

REPORT INFORMATION
  Report Type: Spontaneous
  Country: US (occurrence: US)
  Receive Date: 20180801
  Receipt Date: 20180801
  Transmission Date: 20181010
  Serious: No
  Sender: FDA-Public Use
  Company Number: US-GLAXOSMITHKLINE-US2018131465

PATIENT
  Sex: Male

DRUGS (3)
  1. LAMOTRIGINE TABLET [Suspect]
     Active Substance: LAMOTRIGINE
     Indication: NERVE INJURY
     Dosage: 100 MG, BID
  2. LAMOTRIGINE PROLONGED?RELEASE TABLET [Suspect]
     Active Substance: LAMOTRIGINE
     Indication: NERVE INJURY
     Dosage: 1 DF, QD
  3. LAMICTAL [Suspect]
     Active Substance: LAMOTRIGINE
     Indication: NERVE INJURY
     Dosage: UNK UNK, U

REACTIONS (5)
  - Off label use [Unknown]
  - Product use in unapproved indication [Unknown]
  - Pain in extremity [Unknown]
  - Drug ineffective for unapproved indication [Unknown]
  - Wrong technique in product usage process [Unknown]
